FAERS Safety Report 18694988 (Version 1)
Quarter: 2021Q1

REPORT INFORMATION
  Report Type: Spontaneous
  Country: US (occurrence: US)
  Receive Date: 20210102
  Receipt Date: 20210102
  Transmission Date: 20210419
  Serious: No
  Sender: FDA-Public Use
  Company Number: None

PATIENT
  Sex: Male

DRUGS (4)
  1. ADVAIR DISK AER; DEXAMETHASONE [Concomitant]
  2. DIGOXIN; LIPITOR; NEXIUM; PROAIR HFA [Concomitant]
  3. DOFETILIDE. [Suspect]
     Active Substance: DOFETILIDE
     Indication: PRODUCT USED FOR UNKNOWN INDICATION
     Route: 048
     Dates: start: 20180220
  4. SPIRIVA; SYNTHROID; TOPROL XL; WARFARIN; WELCHOL [Concomitant]

REACTIONS (1)
  - Hospitalisation [None]
